FAERS Safety Report 16540516 (Version 1)
Quarter: 2019Q3

REPORT INFORMATION
  Report Type: Spontaneous
  Country: US (occurrence: US)
  Receive Date: 20190706
  Receipt Date: 20190706
  Transmission Date: 20191004
  Serious: Yes (Disabling, Other)
  Sender: FDA-Public Use
  Company Number: None

PATIENT
  Age: 70 Year
  Sex: Female
  Weight: 71.1 kg

DRUGS (10)
  1. VITAMIN E [Concomitant]
     Active Substance: .ALPHA.-TOCOPHEROL
  2. AMLODIPINE [Concomitant]
     Active Substance: AMLODIPINE BESYLATE
  3. MULTI VITAMIN [Concomitant]
     Active Substance: VITAMINS
  4. CURCUMIN 2K [Concomitant]
  5. CALCIUM (+D) [Concomitant]
  6. LOSARTAN. [Concomitant]
     Active Substance: LOSARTAN
  7. OMEPRAZOLE. [Concomitant]
     Active Substance: OMEPRAZOLE
  8. XARELTO [Concomitant]
     Active Substance: RIVAROXABAN
  9. EQUATE SUPPORT ADVANCED LUBRICANT [Suspect]
     Active Substance: POLYETHYLENE GLYCOL 400\PROPYLENE GLYCOL
     Indication: DRY EYE
     Dosage: ?          QUANTITY:2 DROP(S);?
     Route: 047
     Dates: start: 20190525, end: 20190608
  10. LEVOTHYROXIN [Concomitant]
     Active Substance: LEVOTHYROXINE

REACTIONS (6)
  - Eye irritation [None]
  - Periorbital disorder [None]
  - Blister [None]
  - Ocular hyperaemia [None]
  - Photophobia [None]
  - Drug hypersensitivity [None]

NARRATIVE: CASE EVENT DATE: 20190525
